FAERS Safety Report 6968988-2 (Version None)
Quarter: 2010Q3

REPORT INFORMATION
  Report Type: 
  Country: None (occurrence: None)
  Receive Date: 20100907
  Receipt Date: 20100831
  Transmission Date: 20110219
  Serious: Yes (Other)
  Sender: FDA-Public Use
  Company Number: CHPA2010US13997

PATIENT
  Age: 34 Year
  Sex: Female

DRUGS (1)
  1. PRIVATE LABEL STRENGTH UNKNOWN (NCH) [Suspect]
     Indication: SMOKING CESSATION THERAPY
     Dosage: UNK, UNK
     Route: 062

REACTIONS (1)
  - FIBROMYALGIA [None]
